FAERS Safety Report 5161301-5 (Version None)
Quarter: 2006Q4

REPORT INFORMATION
  Report Type: 
  Country: None (occurrence: None)
  Receive Date: 20061130
  Receipt Date: 20061020
  Transmission Date: 20070319
  Serious: Yes (Death)
  Sender: FDA-Public Use
  Company Number: US-BRISTOL-MYERS SQUIBB COMPANY-13549373

PATIENT
  Age: 54 Year
  Sex: Male

DRUGS (1)
  1. ERBITUX [Suspect]
     Route: 051

REACTIONS (1)
  - DEATH [None]
